FAERS Safety Report 4718423-X (Version None)
Quarter: 2005Q3

REPORT INFORMATION
  Report Type: 
  Country: None (occurrence: None)
  Receive Date: 20050719
  Receipt Date: 20050112
  Transmission Date: 20060218
  Serious: Yes (Other)
  Sender: FDA-Public Use
  Company Number: 2004109485

PATIENT
  Age: 78 Year
  Sex: Female
  Weight: 90.7194 kg

DRUGS (6)
  1. CELEBREX [Suspect]
     Indication: ARTHRITIS
     Dosage: 200 MG (200 MG, 1 IN 1 D), ORAL
     Route: 048
     Dates: start: 20020101
  2. ASPIRIN [Suspect]
     Indication: ARTHRITIS
     Dosage: ORAL
     Route: 048
  3. LEVOTHYROXINE SODIUM [Concomitant]
  4. VALSARTAN [Concomitant]
  5. MULTIVITAMINS (ASCORBIC ACID, ERGOCALCIFEROL, FOLIC ACID, NICOTINAMIDE [Concomitant]
  6. OCUVITE (ASCORBIC ACID, RETINOL, TOCOPHEROL) [Concomitant]

REACTIONS (3)
  - MUSCULOSKELETAL STIFFNESS [None]
  - PAIN [None]
  - RECTAL HAEMORRHAGE [None]
